FAERS Safety Report 4683661-1 (Version None)
Quarter: 2005Q2

REPORT INFORMATION
  Report Type: 
  Country: None (occurrence: None)
  Receive Date: 20050607
  Receipt Date: 20050524
  Transmission Date: 20051028
  Serious: Yes (Death)
  Sender: FDA-Public Use
  Company Number: BE-JNJFOC-20050403634

PATIENT
  Sex: Female

DRUGS (14)
  1. ZOCOR [Interacting]
     Indication: LIPIDS DECREASED
     Route: 049
  2. SPORANOX [Suspect]
     Indication: ANTIFUNGAL PROPHYLAXIS
     Route: 065
  3. KREDEX [Concomitant]
     Indication: HYPERTENSION
     Route: 049
  4. PLAVIX [Concomitant]
     Indication: PROPHYLAXIS
     Route: 049
  5. URGENIN [Concomitant]
  6. URGENIN [Concomitant]
  7. AMMONIA [Concomitant]
  8. CALSYNAR [Concomitant]
     Route: 058
  9. CACIT [Concomitant]
  10. CACIT [Concomitant]
  11. PRIMPERAN INJ [Concomitant]
     Route: 049
  12. ASAFLOW [Concomitant]
     Indication: PROPHYLAXIS
     Route: 049
  13. NITRODERM [Concomitant]
     Route: 062
  14. SERANASE [Concomitant]
     Indication: SEDATIVE THERAPY
     Route: 065

REACTIONS (5)
  - BLOOD POTASSIUM INCREASED [None]
  - DIALYSIS [None]
  - DRUG INTERACTION [None]
  - RENAL IMPAIRMENT [None]
  - RHABDOMYOLYSIS [None]
